FAERS Safety Report 6427317-3 (Version None)
Quarter: 2009Q4

REPORT INFORMATION
  Report Type: 
  Country: None (occurrence: None)
  Receive Date: 20091104
  Receipt Date: 20091028
  Transmission Date: 20100525
  Serious: Yes (Hospitalization)
  Sender: FDA-Public Use
  Company Number: JP-ABBOTT-09P-087-0586851-00

PATIENT
  Sex: Female
  Weight: 55 kg

DRUGS (9)
  1. HUMIRA [Suspect]
     Indication: RHEUMATOID ARTHRITIS
     Route: 058
     Dates: start: 20080909
  2. METHOTREXATE [Concomitant]
     Indication: RHEUMATOID ARTHRITIS
  3. PREDNISOLONE [Concomitant]
     Indication: RHEUMATOID ARTHRITIS
     Route: 048
     Dates: start: 20080909
  4. LOSARTAN POTASSIUM [Concomitant]
     Indication: DIABETES MELLITUS
     Dosage: 50 MG DAILY
  5. OMEPRAZOLE [Concomitant]
     Indication: GASTRITIS PROPHYLAXIS
     Dosage: 20 MG DAILY
  6. FUROSEMIDE [Concomitant]
     Indication: RHEUMATOID ARTHRITIS
     Dosage: 40 MG DAILY
  7. ISONIAZID [Concomitant]
     Indication: ANTIBIOTIC PROPHYLAXIS
     Dosage: 300 MG DAILY
  8. MAGNESIUM OXIDE [Concomitant]
     Indication: GASTRITIS PROPHYLAXIS
  9. INSULIN ASPART [Concomitant]
     Indication: DIABETES MELLITUS
     Dosage: GENETICAL RECOMBINATION

REACTIONS (2)
  - CELLULITIS [None]
  - HYPOGLYCAEMIA [None]
